FAERS Safety Report 25600888 (Version 1)
Quarter: 2025Q3

REPORT INFORMATION
  Report Type: Spontaneous
  Country: US (occurrence: None)
  Receive Date: 20250723
  Receipt Date: 20250723
  Transmission Date: 20251021
  Serious: Yes (Death, Life-Threatening, Hospitalization, Disabling, Other)
  Sender: FDA-CTU
  Company Number: None

PATIENT
  Age: 32 Year
  Sex: Male
  Weight: 67.5 kg

DRUGS (2)
  1. HERBALS [Suspect]
     Active Substance: HERBALS
     Indication: Anxiety
     Dates: start: 20190801, end: 20220430
  2. ABILIFY [Concomitant]
     Active Substance: ARIPIPRAZOLE

REACTIONS (6)
  - Syncope [None]
  - Pulse absent [None]
  - Brain injury [None]
  - Product quality issue [None]
  - Cardiac arrest [None]
  - Quadriplegia [None]

NARRATIVE: CASE EVENT DATE: 20220430
